FAERS Safety Report 13704849 (Version 1)
Quarter: 2017Q2

REPORT INFORMATION
  Report Type: Report from Study
  Country: BR (occurrence: BR)
  Receive Date: 20170630
  Receipt Date: 20170630
  Transmission Date: 20170830
  Serious: Yes (Hospitalization, Other)
  Sender: FDA-Public Use
  Company Number: PHHY2017BR094640

PATIENT
  Sex: Male
  Weight: 60 kg

DRUGS (2)
  1. EXELON PATCH [Suspect]
     Active Substance: RIVASTIGMINE
     Indication: MEMORY IMPAIRMENT
     Dosage: 13.3 MG, QD PATCH 15 CM2
     Route: 062
     Dates: start: 2010
  2. XARELTO [Concomitant]
     Active Substance: RIVAROXABAN
     Indication: THROMBOSIS
     Dosage: UNK
     Route: 065

REACTIONS (14)
  - Abdominal discomfort [Unknown]
  - Dysstasia [Unknown]
  - Speech disorder [Unknown]
  - Tremor [Unknown]
  - Urethral discharge [Recovered/Resolved]
  - Urethritis [Unknown]
  - Dehydration [Unknown]
  - Vomiting [Unknown]
  - Pain [Not Recovered/Not Resolved]
  - Urinary tract infection [Recovering/Resolving]
  - Abasia [Unknown]
  - Memory impairment [Unknown]
  - Procedural haemorrhage [Unknown]
  - Malaise [Unknown]
